FAERS Safety Report 23669704 (Version 2)
Quarter: 2024Q1

REPORT INFORMATION
  Report Type: Spontaneous
  Country: SI (occurrence: SI)
  Receive Date: 20240325
  Receipt Date: 20240326
  Transmission Date: 20240410
  Serious: Yes (Hospitalization, Other)
  Sender: FDA-Public Use
  Company Number: SI-PFIZER INC-PV202400037939

PATIENT
  Sex: Female

DRUGS (8)
  1. MEDROL [Suspect]
     Active Substance: METHYLPREDNISOLONE
     Dosage: 16 MG
     Dates: start: 202206
  2. MEDROL [Suspect]
     Active Substance: METHYLPREDNISOLONE
     Dosage: 4 MG DAILY
  3. METHOTREXATE SODIUM [Concomitant]
     Active Substance: METHOTREXATE SODIUM
     Dosage: 20 MG, WEEKLY
  4. METHOTREXATE SODIUM [Concomitant]
     Active Substance: METHOTREXATE SODIUM
     Dosage: 15 MG, WEEKLY
  5. PRAVASTATIN [Concomitant]
     Active Substance: PRAVASTATIN
     Dosage: UNK
  6. ACTONEL [Concomitant]
     Active Substance: RISEDRONATE SODIUM
     Dosage: UNK
  7. OLEOVIT [RETINOL] [Concomitant]
     Dosage: 35 DROP, WEEKLY
  8. FOLIC ACID [Concomitant]
     Active Substance: FOLIC ACID
     Dosage: 2 TBLS 24 HOURS AFTER MTX

REACTIONS (7)
  - Atrial fibrillation [Unknown]
  - Muscle haemorrhage [Unknown]
  - Pericardial effusion [Unknown]
  - Haemoglobin decreased [Unknown]
  - Pneumocystis jirovecii pneumonia [Recovered/Resolved]
  - Atrial flutter [Unknown]
  - Osteoporosis [Unknown]

NARRATIVE: CASE EVENT DATE: 20220101
